FAERS Safety Report 23493395 (Version 3)
Quarter: 2024Q3

REPORT INFORMATION
  Report Type: Spontaneous
  Country: US (occurrence: US)
  Receive Date: 20240207
  Receipt Date: 20240719
  Transmission Date: 20241016
  Serious: Yes (Hospitalization, Other)
  Sender: BAUSCH AND LOMB
  Company Number: US-BAUSCH-BL-2024-001727

PATIENT
  Age: 80 Year
  Sex: Male
  Weight: 89.892 kg

DRUGS (1)
  1. XIFAXAN [Suspect]
     Active Substance: RIFAXIMIN
     Indication: Hepatic cirrhosis
     Dosage: 1 TABLET IN THE MORNING AND 1 TABLET IN THE EVENING
     Route: 048
     Dates: start: 202310, end: 20240120

REACTIONS (8)
  - Localised infection [Unknown]
  - Paracentesis [Unknown]
  - Dysarthria [Unknown]
  - Body height decreased [Unknown]
  - Weight increased [Unknown]
  - Fall [Unknown]
  - Inability to afford medication [Unknown]
  - Therapy interrupted [Unknown]

NARRATIVE: CASE EVENT DATE: 20240101
